FAERS Safety Report 12216297 (Version 2)
Quarter: 2016Q2

REPORT INFORMATION
  Report Type: Report from Study
  Country: PT (occurrence: PT)
  Receive Date: 20160329
  Receipt Date: 20160406
  Transmission Date: 20160815
  Serious: Yes (Hospitalization)
  Sender: FDA-Public Use
  Company Number: PT-ROCHE-1096505

PATIENT
  Age: 50 Year
  Sex: Female

DRUGS (4)
  1. RANTUDIL [Concomitant]
     Active Substance: ACEMETACIN
     Indication: RHEUMATOID ARTHRITIS
     Route: 048
  2. ARAVA [Concomitant]
     Active Substance: LEFLUNOMIDE
     Indication: RHEUMATOID ARTHRITIS
     Route: 048
  3. ROACTEMRA [Suspect]
     Active Substance: TOCILIZUMAB
     Indication: RHEUMATOID ARTHRITIS
     Route: 042
     Dates: start: 20111228, end: 20120528
  4. LEPICORTINOLO [Concomitant]
     Active Substance: PREDNISOLONE
     Indication: RHEUMATOID ARTHRITIS
     Route: 065

REACTIONS (1)
  - Gastric ulcer perforation [Recovered/Resolved]

NARRATIVE: CASE EVENT DATE: 20120625
